FAERS Safety Report 16183582 (Version 2)
Quarter: 2019Q2

REPORT INFORMATION
  Report Type: Spontaneous
  Country: CH (occurrence: CH)
  Receive Date: 20190411
  Receipt Date: 20190510
  Transmission Date: 20190711
  Serious: Yes (Other)
  Sender: FDA-Public Use
  Company Number: CH-TEVA-2019-CH-1036279

PATIENT
  Sex: Male

DRUGS (1)
  1. IRFEN DOLO FORTE 400 MG, LACTAB [Suspect]
     Active Substance: IBUPROFEN
     Route: 065

REACTIONS (2)
  - Neurological symptom [Unknown]
  - Parkinsonism [Unknown]
